FAERS Safety Report 21506489 (Version 1)
Quarter: 2022Q4

REPORT INFORMATION
  Report Type: Spontaneous
  Country: AM (occurrence: None)
  Receive Date: 20221026
  Receipt Date: 20221026
  Transmission Date: 20230113
  Serious: Yes (Other)
  Sender: FDA-Public Use
  Company Number: AM-ROCHE-3205258

PATIENT
  Age: 42 Year
  Sex: Female

DRUGS (2)
  1. OCREVUS [Suspect]
     Active Substance: OCRELIZUMAB
     Indication: Multiple sclerosis
     Route: 042
     Dates: start: 202112
  2. MABTHERA [Suspect]
     Active Substance: RITUXIMAB
     Indication: Primary progressive multiple sclerosis
     Route: 042
     Dates: start: 202006

REACTIONS (3)
  - Papillary thyroid cancer [Not Recovered/Not Resolved]
  - Off label use [Unknown]
  - Fibrocystic breast disease [Not Recovered/Not Resolved]

NARRATIVE: CASE EVENT DATE: 20220601
